FAERS Safety Report 13473913 (Version 3)
Quarter: 2017Q3

REPORT INFORMATION
  Report Type: Spontaneous
  Country: US (occurrence: US)
  Receive Date: 20170424
  Receipt Date: 20170823
  Transmission Date: 20171127
  Serious: Yes (Hospitalization)
  Sender: FDA-Public Use
  Company Number: US-ELI_LILLY_AND_COMPANY-US201704006253

PATIENT
  Age: 34 Year
  Sex: Female

DRUGS (1)
  1. TALTZ [Suspect]
     Active Substance: IXEKIZUMAB
     Indication: PRODUCT USED FOR UNKNOWN INDICATION
     Dosage: 80 MG, UNKNOWN
     Route: 058

REACTIONS (10)
  - Diarrhoea [Unknown]
  - Eyelid oedema [Unknown]
  - Injection site reaction [Unknown]
  - Lip swelling [Unknown]
  - Chest pain [Unknown]
  - Pharyngeal oedema [Unknown]
  - Joint swelling [Unknown]
  - Peripheral swelling [Unknown]
  - Ear swelling [Unknown]
  - Hypersensitivity [Unknown]
